FAERS Safety Report 4497202-5 (Version None)
Quarter: 2004Q4

REPORT INFORMATION
  Report Type: 
  Country: None (occurrence: None)
  Receive Date: 20041110
  Receipt Date: 20041029
  Transmission Date: 20050328
  Serious: Yes (Hospitalization)
  Sender: FDA-Public Use
  Company Number: ES-BRISTOL-MYERS SQUIBB COMPANY-12755245

PATIENT
  Age: 75 Year
  Sex: Male

DRUGS (2)
  1. CETUXIMAB [Suspect]
     Indication: COLORECTAL CANCER
     Dosage: 25-OCT-2004, MOST RECENT INFUSION.  3RD INFUSION SO FAR.
     Route: 041
     Dates: start: 20041001
  2. IRINOTECAN [Suspect]
     Indication: COLORECTAL CANCER
     Dosage: 25-OCT-2004, MOST RECENT INFUSION. 2ND INFUSION THUS FAR.
     Route: 042
     Dates: start: 20041001

REACTIONS (5)
  - BLOOD PRESSURE SYSTOLIC INCREASED [None]
  - COLITIS [None]
  - DEHYDRATION [None]
  - DIARRHOEA [None]
  - FAECAL INCONTINENCE [None]
